FAERS Safety Report 7133715 (Version 11)
Quarter: 2012Q4

REPORT INFORMATION
  Report Type: 
  Country: CA (occurrence: CA)
  Receive Date: 20090929
  Receipt Date: 20121023
  Transmission Date: 20130627
  Serious: Yes (Hospitalization, Other)
  Sender: FDA-Public Use
  Company Number: PHHY2009CA40543

PATIENT
  Age: 44 Year
  Sex: Male

DRUGS (18)
  1. EXJADE [Suspect]
     Indication: THALASSAEMIA
     Dosage: 2.5 g, UNK
     Route: 048
     Dates: start: 20080107
  2. EXJADE [Suspect]
     Dosage: 1500 mg, QD
     Route: 048
     Dates: start: 200801
  3. EXJADE [Suspect]
     Dosage: 2000 mg, QD
     Route: 048
     Dates: start: 200801
  4. EXJADE [Suspect]
     Dosage: 2500 mg, QD
     Route: 048
     Dates: start: 20080501
  5. EXJADE [Suspect]
     Dosage: 2000 mg, UNK
     Dates: start: 200911
  6. EXJADE [Suspect]
     Dosage: 1500 mg, UNK
     Route: 048
  7. EXJADE [Suspect]
     Dosage: 2000 mg, UNK
     Route: 048
  8. EXJADE [Suspect]
     Dates: start: 20080126
  9. FOLIC ACID [Concomitant]
     Dosage: 5 mg, QD
     Route: 048
  10. ACTONEL [Concomitant]
  11. VITAMIN D [Concomitant]
     Dosage: 1000 IU, QD
     Route: 048
  12. REACTINE [Concomitant]
     Dosage: 10 mg, QD
     Route: 048
  13. MAGNESIUM [Concomitant]
  14. LORAZEPAM [Concomitant]
  15. RISEDRONIC ACID [Concomitant]
  16. CALCIUM [Concomitant]
  17. SILDENAFIL [Concomitant]
  18. ANDROGEL [Concomitant]

REACTIONS (20)
  - Pulmonary hypertension [Recovering/Resolving]
  - Stress [Recovering/Resolving]
  - Tibia fracture [Recovered/Resolved]
  - Fall [Recovered/Resolved]
  - Pulmonary fibrosis [Unknown]
  - Oral candidiasis [Recovering/Resolving]
  - Insomnia [Recovering/Resolving]
  - Oedema peripheral [Recovering/Resolving]
  - Cardiovascular disorder [Unknown]
  - Urticaria [Recovering/Resolving]
  - Pruritus generalised [Recovering/Resolving]
  - Diarrhoea [Recovering/Resolving]
  - Hypertension [Unknown]
  - Dental caries [Unknown]
  - Toothache [Unknown]
  - Abdominal discomfort [Unknown]
  - Serum ferritin increased [Unknown]
  - Headache [Unknown]
  - Blood creatinine increased [Unknown]
  - Abdominal pain upper [Recovering/Resolving]
